FAERS Safety Report 9285054 (Version 1)
Quarter: 2013Q2

REPORT INFORMATION
  Report Type: Report from Study
  Country: CA (occurrence: CA)
  Receive Date: 20130513
  Receipt Date: 20130513
  Transmission Date: 20140414
  Serious: Yes (Other)
  Sender: FDA-Public Use
  Company Number: CA-JNJFOC-20130503846

PATIENT
  Age: 41 Year
  Sex: Female
  Weight: 94.3 kg

DRUGS (7)
  1. REMICADE [Suspect]
     Indication: PSORIATIC ARTHROPATHY
     Route: 042
  2. REMICADE [Suspect]
     Indication: PSORIATIC ARTHROPATHY
     Dosage: NINTH INFUSION
     Route: 042
     Dates: start: 20130502
  3. DIPHENHYDRAMINE HYDROCHLORIDE [Concomitant]
     Indication: PREMEDICATION
     Route: 042
  4. ASPIRIN [Concomitant]
     Route: 065
  5. ATORVASTATIN [Concomitant]
     Route: 065
  6. COVERSYL [Concomitant]
     Route: 065
  7. DESVENLAFAXINE [Concomitant]
     Route: 065

REACTIONS (5)
  - Syncope [Unknown]
  - Hyperhidrosis [Unknown]
  - Erythema [Unknown]
  - Nasopharyngitis [Recovered/Resolved]
  - Sinusitis [Recovered/Resolved]
